FAERS Safety Report 25746613 (Version 1)
Quarter: 2025Q3

REPORT INFORMATION
  Report Type: Spontaneous
  Country: EU (occurrence: EU)
  Receive Date: 20250901
  Receipt Date: 20250901
  Transmission Date: 20251021
  Serious: Yes (Hospitalization, Other)
  Sender: BRISTOL-MYERS SQUIBB COMPANY
  Company Number: EU-BRISTOL-MYERS SQUIBB COMPANY-2025-101374

PATIENT
  Age: 75 Year
  Sex: Female
  Weight: 75 kg

DRUGS (23)
  1. ELIQUIS [Suspect]
     Active Substance: APIXABAN
     Indication: Atrial fibrillation
     Route: 048
     Dates: start: 202305, end: 20250701
  2. LEVOTHYROXINE SODIUM [Concomitant]
     Active Substance: LEVOTHYROXINE SODIUM
     Indication: Hypothyroidism
     Dosage: IN MORNING
  3. ROSUVASTATIN [Concomitant]
     Active Substance: ROSUVASTATIN
     Indication: Hypercholesterolaemia
     Dosage: IN MORNING
  4. ROSUVASTATIN [Concomitant]
     Active Substance: ROSUVASTATIN
     Indication: Cerebrovascular accident
  5. EZETIMIBE [Concomitant]
     Active Substance: EZETIMIBE
     Indication: Hepatic steatosis
     Dosage: ONCE IN THE EVENING
  6. LEQVIO [Concomitant]
     Active Substance: INCLISIRAN SODIUM
     Indication: Hepatic steatosis
     Route: 058
  7. CANDESARTAN CILEXETIL [Concomitant]
     Active Substance: CANDESARTAN CILEXETIL
     Indication: Hypertension
  8. OMEPRAZOLE [Concomitant]
     Active Substance: OMEPRAZOLE
     Indication: Gastrooesophageal reflux disease
     Dosage: MORNING
  9. CHOLECALCIFEROL [Concomitant]
     Active Substance: CHOLECALCIFEROL
     Indication: Vitamin D deficiency
  10. FOLIC ACID [Concomitant]
     Active Substance: FOLIC ACID
     Indication: Product used for unknown indication
     Dosage: RATIOPHARM 5 M TABLETS ONCE IN THE MORNING EVERY 4 WEEKS FOR FOLIC ACID
  11. BUDESONIDE [Concomitant]
     Active Substance: BUDESONIDE
     Indication: Obstruction
     Dosage: 200 UG/9.8 UG
     Route: 055
  12. METAMIZOLE [Concomitant]
     Active Substance: METAMIZOLE
     Indication: Pain
  13. GABAPENTIN BASICS [Concomitant]
     Indication: Pain
     Dosage: ACCORDING TO SCHEDULE FOR REDUCTION
  14. ZOLPIDEM [Concomitant]
     Active Substance: ZOLPIDEM TARTRATE
     Indication: Sleep disorder
     Dosage: AT NIGHT
  15. ZOMIG [Concomitant]
     Active Substance: ZOLMITRIPTAN
     Indication: Migraine
     Route: 045
  16. BENSERAZIDE\LEVODOPA [Concomitant]
     Active Substance: BENSERAZIDE\LEVODOPA
     Indication: Restless legs syndrome
  17. CHOLECALCIFEROL [Concomitant]
     Active Substance: CHOLECALCIFEROL
     Indication: Product used for unknown indication
     Dosage: SUNDAY
  18. INCLISIRAN [Concomitant]
     Active Substance: INCLISIRAN
     Indication: Product used for unknown indication
  19. METAMIZOL [Concomitant]
     Active Substance: METAMIZOLE SODIUM
     Indication: Product used for unknown indication
  20. TINZAPARIN SODIUM [Concomitant]
     Active Substance: TINZAPARIN SODIUM
     Indication: Product used for unknown indication
  21. INFLUENZA VIRUS VACCINE [Concomitant]
     Active Substance: INFLUENZA VIRUS VACCINE
     Indication: Influenza immunisation
     Dates: start: 20241007
  22. INFLUENZA VIRUS VACCINE [Concomitant]
     Active Substance: INFLUENZA VIRUS VACCINE
     Dates: start: 20231016
  23. COVID-19 VACCINE [Concomitant]
     Indication: COVID-19 immunisation
     Dates: start: 20231016

REACTIONS (6)
  - Cardiac failure [Unknown]
  - Transient ischaemic attack [Unknown]
  - Cerebral infarction [Recovered/Resolved]
  - Cerebrovascular accident [Unknown]
  - Cerebral ischaemia [Unknown]
  - Macroangiopathy [Unknown]

NARRATIVE: CASE EVENT DATE: 20230619
